FAERS Safety Report 7735582-5 (Version None)
Quarter: 2011Q3

REPORT INFORMATION
  Report Type: 
  Country: None (occurrence: None)
  Receive Date: 20110907
  Receipt Date: 20110901
  Transmission Date: 20111222
  Serious: Yes (Hospitalization)
  Sender: FDA-Public Use
  Company Number: GB-AMGEN-GBRCT2011045084

PATIENT
  Age: 75 Year
  Sex: Female

DRUGS (3)
  1. DEXAMETHASONE [Concomitant]
     Dosage: UNK
     Dates: start: 20110711
  2. DENOSUMAB [Suspect]
     Indication: BREAST CANCER
     Dosage: 120 MG, Q4WK
     Route: 058
     Dates: start: 20110803
  3. EPIRUBICIN [Concomitant]
     Dosage: 194 MG, Q3WK
     Route: 042
     Dates: start: 20110711

REACTIONS (1)
  - HYPERGLYCAEMIA [None]
